FAERS Safety Report 17805367 (Version 4)
Quarter: 2021Q2

REPORT INFORMATION
  Report Type: Spontaneous
  Country: US (occurrence: US)
  Receive Date: 20200520
  Receipt Date: 20210531
  Transmission Date: 20210716
  Serious: No
  Sender: FDA-Public Use
  Company Number: US-SA-2020SA127001

PATIENT
  Age: 65 Year
  Sex: Female

DRUGS (3)
  1. METOPROLOL. [Suspect]
     Active Substance: METOPROLOL
  2. MODERNA COVID?19 VACCINE [Suspect]
     Active Substance: CX-024414
     Route: 065
  3. DUPIXENT [Suspect]
     Active Substance: DUPILUMAB
     Indication: DERMATITIS ATOPIC
     Dosage: 300 MG, QOW
     Route: 058
     Dates: start: 20190423

REACTIONS (13)
  - Pyrexia [Unknown]
  - Fatigue [Unknown]
  - Chills [Unknown]
  - COVID-19 [Recovered/Resolved]
  - Inflammation [Unknown]
  - Tremor [Unknown]
  - Decreased appetite [Unknown]
  - Headache [Unknown]
  - Condition aggravated [Unknown]
  - Weight increased [Unknown]
  - Illness [Unknown]
  - Intentional dose omission [Unknown]
  - Decreased appetite [Unknown]

NARRATIVE: CASE EVENT DATE: 2020
